FAERS Safety Report 16199144 (Version 1)
Quarter: 2019Q2

REPORT INFORMATION
  Report Type: Other
  Country: None (occurrence: IT)
  Receive Date: 20190415
  Receipt Date: 20190415
  Transmission Date: 20190711
  Serious: Yes (Other)
  Sender: FDA-Public Use
  Company Number: IT-LABORATOIRE HRA PHARMA-2065835

PATIENT
  Age: 35 Year
  Sex: Female
  Weight: 55 kg

DRUGS (1)
  1. ELLA [Suspect]
     Active Substance: ULIPRISTAL ACETATE
     Indication: POST COITAL CONTRACEPTION
     Route: 048
     Dates: start: 20170909, end: 20170909

REACTIONS (2)
  - Abortion spontaneous [Unknown]
  - Unintended pregnancy [None]

NARRATIVE: CASE EVENT DATE: 20171008
